FAERS Safety Report 22943546 (Version 15)
Quarter: 2025Q2

REPORT INFORMATION
  Report Type: Report from Study
  Country: US (occurrence: US)
  Receive Date: 20230914
  Receipt Date: 20250623
  Transmission Date: 20250717
  Serious: Yes (Other)
  Sender: TAKEDA
  Company Number: US-PAREXEL-2021-KAM-US003428

PATIENT
  Age: 77 Year
  Sex: Female
  Weight: 81 kg

DRUGS (47)
  1. GLASSIA [Suspect]
     Active Substance: .ALPHA.1-PROTEINASE INHIBITOR HUMAN
     Indication: Alpha-1 antitrypsin deficiency
     Dosage: UNK UNK, 1/WEEK
  2. GLASSIA [Suspect]
     Active Substance: .ALPHA.1-PROTEINASE INHIBITOR HUMAN
     Indication: Pulmonary arterial hypertension
     Dosage: 60 MILLIGRAM/KILOGRAM, 1/WEEK
  3. EPINEPHRINE [Concomitant]
     Active Substance: EPINEPHRINE
  4. ZYRTEC [Concomitant]
     Active Substance: CETIRIZINE HYDROCHLORIDE
  5. SPIRIVA RESPIMAT [Concomitant]
     Active Substance: TIOTROPIUM BROMIDE
  6. AMLODIPINE BESYLATE [Concomitant]
     Active Substance: AMLODIPINE BESYLATE
  7. Neurivas [Concomitant]
  8. RIFAMPIN [Concomitant]
     Active Substance: RIFAMPIN
  9. PROZAC [Concomitant]
     Active Substance: FLUOXETINE HYDROCHLORIDE
  10. SODIUM CHLORIDE [Concomitant]
     Active Substance: SODIUM CHLORIDE
  11. LORAZEPAM [Concomitant]
     Active Substance: LORAZEPAM
  12. LISINOPRIL [Concomitant]
     Active Substance: LISINOPRIL
  13. PROTONIX [Concomitant]
     Active Substance: PANTOPRAZOLE SODIUM
  14. YUVAFEM [Concomitant]
     Active Substance: ESTRADIOL HEMIHYDRATE
  15. FLONASE ALLERGY RELIEF [Concomitant]
     Active Substance: FLUTICASONE PROPIONATE
  16. B active [Concomitant]
  17. LIDOCAINE [Concomitant]
     Active Substance: LIDOCAINE
  18. DICLOFENAC SODIUM [Concomitant]
     Active Substance: DICLOFENAC SODIUM
  19. METOPROLOL SUCCINATE [Concomitant]
     Active Substance: METOPROLOL SUCCINATE
  20. OXYGEN [Concomitant]
     Active Substance: OXYGEN
  21. DIPHENHYDRAMINE HYDROCHLORIDE [Concomitant]
     Active Substance: DIPHENHYDRAMINE HYDROCHLORIDE
  22. MONTELUKAST SODIUM [Concomitant]
     Active Substance: MONTELUKAST SODIUM
  23. POLYETHYLENE GLYCOL [Concomitant]
     Active Substance: POLYETHYLENE GLYCOL
  24. PROAIR HFA [Concomitant]
     Active Substance: ALBUTEROL SULFATE
  25. FEXOFENADINE HYDROCHLORIDE [Concomitant]
     Active Substance: FEXOFENADINE HYDROCHLORIDE
  26. ACETAMINOPHEN [Concomitant]
     Active Substance: ACETAMINOPHEN
  27. AZITHROMYCIN [Concomitant]
     Active Substance: AZITHROMYCIN
  28. ONDANSETRON HYDROCHLORIDE [Concomitant]
     Active Substance: ONDANSETRON HYDROCHLORIDE
  29. ETHAMBUTOL HYDROCHLORIDE [Concomitant]
     Active Substance: ETHAMBUTOL HYDROCHLORIDE
  30. ASPIRIN [Concomitant]
     Active Substance: ASPIRIN
  31. SYNTHROID [Concomitant]
     Active Substance: LEVOTHYROXINE SODIUM
  32. CRANBERRY [Concomitant]
     Active Substance: CRANBERRY
  33. PRAVASTATIN SODIUM [Concomitant]
     Active Substance: PRAVASTATIN SODIUM
  34. SPIRIVA [Concomitant]
     Active Substance: TIOTROPIUM BROMIDE MONOHYDRATE
  35. ACIDOPHILUS [Concomitant]
     Active Substance: LACTOBACILLUS ACIDOPHILUS
  36. VITAMIN D3 [Concomitant]
     Active Substance: CHOLECALCIFEROL
  37. MONTELUKAST [Concomitant]
     Active Substance: MONTELUKAST
  38. IPRATROPIUM BROMIDE [Concomitant]
     Active Substance: IPRATROPIUM BROMIDE
  39. METOPROLOL [Concomitant]
     Active Substance: METOPROLOL
  40. ZOCOR [Concomitant]
     Active Substance: SIMVASTATIN
  41. IRON [Concomitant]
     Active Substance: IRON
  42. TRELEGY ELLIPTA [Concomitant]
     Active Substance: FLUTICASONE FUROATE\UMECLIDINIUM BROMIDE\VILANTEROL TRIFENATATE
  43. PROAIR DIGIHALER [Concomitant]
     Active Substance: ALBUTEROL SULFATE
  44. ALLEGRA ALLERGY [Concomitant]
     Active Substance: FEXOFENADINE HYDROCHLORIDE
  45. MAGNESIUM GLYCINATE [Concomitant]
     Active Substance: MAGNESIUM GLYCINATE
  46. BUDESONIDE\FORMOTEROL [Concomitant]
     Active Substance: BUDESONIDE\FORMOTEROL
  47. FLUCONAZOLE [Concomitant]
     Active Substance: FLUCONAZOLE

REACTIONS (30)
  - Aspergillus infection [Unknown]
  - Atypical mycobacterial infection [Unknown]
  - Mycobacterium avium complex infection [Unknown]
  - Pneumonia [Unknown]
  - Lower respiratory tract infection [Unknown]
  - COVID-19 [Unknown]
  - Seasonal allergy [Unknown]
  - Poor venous access [Unknown]
  - Cystitis [Unknown]
  - Urinary tract discomfort [Unknown]
  - Vein disorder [Unknown]
  - Hot flush [Unknown]
  - Drug eruption [Unknown]
  - Rhinalgia [Unknown]
  - Skin discolouration [Unknown]
  - Dysphonia [Unknown]
  - Limb discomfort [Unknown]
  - Memory impairment [Unknown]
  - Infection [Unknown]
  - Dyspnoea exertional [Unknown]
  - Fungal infection [Unknown]
  - Therapeutic response shortened [Unknown]
  - Candida infection [Unknown]
  - Multiple allergies [Unknown]
  - Off label use [Unknown]
  - Product dose omission issue [Unknown]
  - Diarrhoea [Recovered/Resolved]
  - Fatigue [Recovered/Resolved]
  - Cough [Unknown]
  - Dyspnoea [Unknown]

NARRATIVE: CASE EVENT DATE: 20200104
